FAERS Safety Report 9437797 (Version 1)
Quarter: 2013Q3

REPORT INFORMATION
  Report Type: Spontaneous
  Country: US (occurrence: US)
  Receive Date: 20130802
  Receipt Date: 20130802
  Transmission Date: 20140515
  Serious: No
  Sender: FDA-Public Use
  Company Number: US-BRISTOL-MYERS SQUIBB COMPANY-17456872

PATIENT
  Age: 69 Year
  Sex: Male

DRUGS (1)
  1. COUMADIN [Suspect]
     Dosage: INITIAL DOSE-5.25MG FOR 6-7YRS?DOSE CHANGE: 5.5MG, 5 MG, 5.5 MG, 1.5 MG
     Dates: start: 201302

REACTIONS (1)
  - International normalised ratio increased [Unknown]
